FAERS Safety Report 12694105 (Version 1)
Quarter: 2016Q3

REPORT INFORMATION
  Report Type: Spontaneous
  Country: US (occurrence: US)
  Receive Date: 20160829
  Receipt Date: 20160829
  Transmission Date: 20161109
  Serious: No
  Sender: FDA-Public Use
  Company Number: US-ASTRAZENECA-2016SE89309

PATIENT
  Sex: Female
  Weight: 53.5 kg

DRUGS (2)
  1. ANASTROZOLE. [Suspect]
     Active Substance: ANASTROZOLE
     Indication: BREAST CANCER
     Route: 048
  2. ANASTROZOLE. [Suspect]
     Active Substance: ANASTROZOLE
     Indication: BREAST CANCER
     Route: 048

REACTIONS (9)
  - Peripheral swelling [Unknown]
  - Facial bones fracture [Unknown]
  - Abdominal distension [Unknown]
  - Fatigue [Unknown]
  - Dizziness [Unknown]
  - Dyspnoea [Unknown]
  - Hyperhidrosis [Unknown]
  - Muscle spasms [Unknown]
  - Lethargy [Unknown]
